FAERS Safety Report 16206623 (Version 1)
Quarter: 2019Q2

REPORT INFORMATION
  Report Type: Spontaneous
  Country: US (occurrence: US)
  Receive Date: 20190416
  Receipt Date: 20190416
  Transmission Date: 20190711
  Serious: Yes (Life-Threatening, Hospitalization)
  Sender: FDA-Public Use
  Company Number: None

PATIENT
  Age: 67 Year
  Sex: Female
  Weight: 61.9 kg

DRUGS (10)
  1. PHENYLEPHRINE 100 MCG [Concomitant]
     Dates: start: 20190327, end: 20190327
  2. PROPOFOL 25 MCG [Concomitant]
     Dates: start: 20190327, end: 20190327
  3. FAMOTIDINE 20 MG [Concomitant]
     Active Substance: FAMOTIDINE
     Dates: start: 20190327, end: 20190327
  4. ACETAMINOPHEN 650 MG [Concomitant]
     Active Substance: ACETAMINOPHEN
     Dates: start: 20190327, end: 20190327
  5. CEFAZOLIN 2000 MG [Concomitant]
     Dates: start: 20190327, end: 20190327
  6. DIPHENHYDRAMINE 25 MG [Concomitant]
     Dates: start: 20190327, end: 20190327
  7. FENTANYL 50 MCG [Concomitant]
     Active Substance: FENTANYL
     Dates: start: 20190327, end: 20190327
  8. THYMOGLOBULIN [Suspect]
     Active Substance: LAPINE T-LYMPHOCYTE IMMUNE GLOBULIN
     Indication: RENAL TRANSPLANT
     Dosage: ?          OTHER FREQUENCY:ONCE;?
     Route: 042
  9. METHYLPREDNISOLONE 500 MG [Concomitant]
     Dates: start: 20190327, end: 20190327
  10. ESMOLOL 100 MG [Concomitant]
     Dates: start: 20190327, end: 20190327

REACTIONS (2)
  - Infusion related reaction [None]
  - Hypotension [None]

NARRATIVE: CASE EVENT DATE: 20190327
